FAERS Safety Report 9494851 (Version 2)
Quarter: 2013Q3

REPORT INFORMATION
  Report Type: Report from Study
  Country: ES (occurrence: ES)
  Receive Date: 20130903
  Receipt Date: 20130912
  Transmission Date: 20140515
  Serious: Yes (Other)
  Sender: FDA-Public Use
  Company Number: ES-009507513-1308ESP013314

PATIENT
  Age: 62 Year
  Sex: Male
  Weight: 62 kg

DRUGS (7)
  1. RIBAVIRIN [Suspect]
     Indication: CHRONIC HEPATITIS C
     Dosage: 800 MG DAILY
     Route: 048
     Dates: start: 20121010, end: 20121205
  2. RIBAVIRIN [Suspect]
     Dosage: 600 MG, DAILY
     Route: 048
     Dates: start: 20121205
  3. PEGINTERFERON ALFA-2B [Suspect]
     Indication: CHRONIC HEPATITIS C
     Dosage: 100 MICROGRAM, QW
     Route: 058
     Dates: start: 20121010, end: 20130103
  4. PEGINTERFERON ALFA-2B [Suspect]
     Dosage: 80 MICROGRAM, QW
     Route: 058
     Dates: start: 20130103
  5. BOCEPREVIR [Suspect]
     Indication: CHRONIC HEPATITIS C
     Dosage: UNK
     Route: 048
     Dates: start: 20121119, end: 20130123
  6. ATORVASTATIN [Concomitant]
     Dosage: 10 MG, QD
     Dates: start: 20121010, end: 20130306
  7. ACETAMINOPHEN [Concomitant]
     Dosage: 3 G, UNK
     Dates: start: 20121010

REACTIONS (1)
  - Anaemia [Not Recovered/Not Resolved]
